FAERS Safety Report 9984134 (Version 1)
Quarter: 2014Q1

REPORT INFORMATION
  Report Type: Report from Study
  Country: BR (occurrence: BR)
  Receive Date: 20140307
  Receipt Date: 20140307
  Transmission Date: 20141002
  Serious: Yes (Hospitalization, Other)
  Sender: FDA-Public Use
  Company Number: BR-BAYER-2014-030265

PATIENT
  Age: 50 Year
  Sex: Male

DRUGS (2)
  1. NEXAVAR [Suspect]
     Indication: HEPATIC CANCER
     Dosage: 2 DF, BID
     Route: 048
     Dates: start: 20140109, end: 201401
  2. NEXAVAR [Suspect]
     Indication: HEPATIC CANCER
     Dosage: 1 DF, BID
     Route: 048

REACTIONS (8)
  - Inguinal hernia [Recovered/Resolved]
  - Abnormal behaviour [Recovering/Resolving]
  - Incoherent [Recovering/Resolving]
  - Hallucination, visual [Recovering/Resolving]
  - Confusional state [Recovering/Resolving]
  - Abnormal behaviour [Recovering/Resolving]
  - Decreased appetite [Not Recovered/Not Resolved]
  - Abdominal pain [None]
